FAERS Safety Report 4911114-1 (Version None)
Quarter: 2006Q1

REPORT INFORMATION
  Report Type: 
  Country: None (occurrence: None)
  Receive Date: 20060209
  Receipt Date: 20060131
  Transmission Date: 20060701
  Serious: Yes (Other)
  Sender: FDA-Public Use
  Company Number: 2006-BP-01154RO

PATIENT
  Age: 59 Year
  Sex: Female
  Weight: 60 kg

DRUGS (4)
  1. METHOTREXATE [Suspect]
     Indication: RHEUMATOID ARTHRITIS
     Dosage: SEE IMAGE
     Dates: start: 19820601, end: 19820901
  2. METHOTREXATE [Suspect]
     Indication: RHEUMATOID ARTHRITIS
     Dosage: SEE IMAGE
     Dates: start: 19820901
  3. NSAIDS (NSAID'S) [Concomitant]
  4. FOLIC ACID [Concomitant]

REACTIONS (5)
  - GLOMERULOSCLEROSIS [None]
  - KIDNEY FIBROSIS [None]
  - KIDNEY SMALL [None]
  - NEPHROPATHY TOXIC [None]
  - RENAL IMPAIRMENT [None]
